FAERS Safety Report 8567680-0 (Version None)
Quarter: 2012Q3

REPORT INFORMATION
  Report Type: 
  Country: None (occurrence: None)
  Receive Date: 20120803
  Receipt Date: 20120720
  Transmission Date: 20120928
  Serious: Yes (Hospitalization)
  Sender: FDA-Public Use
  Company Number: US-ELI_LILLY_AND_COMPANY-US201207006432

PATIENT
  Age: 65 Year
  Sex: Male

DRUGS (2)
  1. FLUOXETINE HYDROCHLORIDE [Suspect]
     Dosage: 20 MG, QD
  2. DONEPEZIL HCL [Concomitant]
     Indication: SCHIZOAFFECTIVE DISORDER BIPOLAR TYPE
     Dosage: 10 MG, EACH EVENING

REACTIONS (5)
  - FAECAL INCONTINENCE [None]
  - ABNORMAL BEHAVIOUR [None]
  - CHOLINERGIC SYNDROME [None]
  - AGITATION [None]
  - DRUG INTERACTION [None]
